FAERS Safety Report 24993624 (Version 2)
Quarter: 2025Q2

REPORT INFORMATION
  Report Type: Report from Study
  Country: CA (occurrence: CA)
  Receive Date: 20250221
  Receipt Date: 20250617
  Transmission Date: 20250717
  Serious: Yes (Hospitalization, Disabling, Other)
  Sender: CELLTRION
  Company Number: CA-CELLTRION INC.-2025CA004550

PATIENT

DRUGS (135)
  1. BEVACIZUMAB [Suspect]
     Active Substance: BEVACIZUMAB
     Indication: Product used for unknown indication
     Route: 042
  2. BEVACIZUMAB [Suspect]
     Active Substance: BEVACIZUMAB
     Route: 042
  3. ADVAIR HFA [Suspect]
     Active Substance: FLUTICASONE PROPIONATE\SALMETEROL XINAFOATE
     Indication: Eosinophilic granulomatosis with polyangiitis
     Route: 065
  4. ADVAIR HFA [Suspect]
     Active Substance: FLUTICASONE PROPIONATE\SALMETEROL XINAFOATE
     Route: 065
  5. ADVAIR HFA [Suspect]
     Active Substance: FLUTICASONE PROPIONATE\SALMETEROL XINAFOATE
     Route: 065
  6. ADVAIR HFA [Suspect]
     Active Substance: FLUTICASONE PROPIONATE\SALMETEROL XINAFOATE
     Route: 065
  7. ADVAIR HFA [Suspect]
     Active Substance: FLUTICASONE PROPIONATE\SALMETEROL XINAFOATE
     Indication: Eosinophilic granulomatosis with polyangiitis
     Route: 065
  8. ADVAIR HFA [Suspect]
     Active Substance: FLUTICASONE PROPIONATE\SALMETEROL XINAFOATE
     Route: 065
  9. ADVAIR HFA [Suspect]
     Active Substance: FLUTICASONE PROPIONATE\SALMETEROL XINAFOATE
     Route: 065
  10. ADVAIR HFA [Suspect]
     Active Substance: FLUTICASONE PROPIONATE\SALMETEROL XINAFOATE
     Route: 065
  11. ADVAIR HFA [Suspect]
     Active Substance: FLUTICASONE PROPIONATE\SALMETEROL XINAFOATE
     Route: 065
  12. ADVAIR HFA [Suspect]
     Active Substance: FLUTICASONE PROPIONATE\SALMETEROL XINAFOATE
     Route: 065
  13. ADVAIR HFA [Suspect]
     Active Substance: FLUTICASONE PROPIONATE\SALMETEROL XINAFOATE
     Route: 065
  14. ADVAIR HFA [Suspect]
     Active Substance: FLUTICASONE PROPIONATE\SALMETEROL XINAFOATE
     Route: 065
  15. ADVAIR HFA [Suspect]
     Active Substance: FLUTICASONE PROPIONATE\SALMETEROL XINAFOATE
     Route: 065
  16. ADVAIR HFA [Suspect]
     Active Substance: FLUTICASONE PROPIONATE\SALMETEROL XINAFOATE
     Route: 065
  17. ADVAIR HFA [Suspect]
     Active Substance: FLUTICASONE PROPIONATE\SALMETEROL XINAFOATE
     Route: 065
  18. ADVAIR HFA [Suspect]
     Active Substance: FLUTICASONE PROPIONATE\SALMETEROL XINAFOATE
     Route: 065
  19. ALBUTEROL [Suspect]
     Active Substance: ALBUTEROL
     Indication: Eosinophilic granulomatosis with polyangiitis
     Route: 065
  20. ALENDRONATE SODIUM [Suspect]
     Active Substance: ALENDRONATE SODIUM
     Indication: Product used for unknown indication
     Route: 065
  21. ALENDRONATE SODIUM [Suspect]
     Active Substance: ALENDRONATE SODIUM
     Route: 065
  22. ALENDRONATE SODIUM [Suspect]
     Active Substance: ALENDRONATE SODIUM
     Indication: Product used for unknown indication
     Route: 065
  23. BICALUTAMIDE [Suspect]
     Active Substance: BICALUTAMIDE
     Indication: Product used for unknown indication
     Route: 048
  24. BICALUTAMIDE [Suspect]
     Active Substance: BICALUTAMIDE
     Indication: Product used for unknown indication
     Route: 048
  25. CALCIUM [Suspect]
     Active Substance: CALCIUM
     Indication: Eosinophilic granulomatosis with polyangiitis
  26. CALCIUM CARBONATE [Suspect]
     Active Substance: CALCIUM CARBONATE
     Indication: Eosinophilic granulomatosis with polyangiitis
     Route: 065
  27. CALCIUM CARBONATE [Suspect]
     Active Substance: CALCIUM CARBONATE
     Indication: Eosinophilic granulomatosis with polyangiitis
     Route: 065
  28. CYCLOPHOSPHAMIDE [Suspect]
     Active Substance: CYCLOPHOSPHAMIDE
     Indication: Product used for unknown indication
     Route: 042
  29. CYCLOPHOSPHAMIDE [Suspect]
     Active Substance: CYCLOPHOSPHAMIDE
     Route: 042
  30. CYCLOPHOSPHAMIDE [Suspect]
     Active Substance: CYCLOPHOSPHAMIDE
     Route: 042
  31. CYCLOPHOSPHAMIDE [Suspect]
     Active Substance: CYCLOPHOSPHAMIDE
     Route: 042
  32. CYCLOPHOSPHAMIDE [Suspect]
     Active Substance: CYCLOPHOSPHAMIDE
     Route: 042
  33. CYCLOPHOSPHAMIDE [Suspect]
     Active Substance: CYCLOPHOSPHAMIDE
     Route: 048
  34. CYCLOPHOSPHAMIDE [Suspect]
     Active Substance: CYCLOPHOSPHAMIDE
     Indication: Product used for unknown indication
     Route: 048
  35. ERGOCALCIFEROL [Suspect]
     Active Substance: ERGOCALCIFEROL
     Indication: Product used for unknown indication
     Route: 065
  36. ERGOCALCIFEROL [Suspect]
     Active Substance: ERGOCALCIFEROL
     Indication: Product used for unknown indication
     Route: 065
  37. FLUTICASONE [Suspect]
     Active Substance: FLUTICASONE
     Indication: Eosinophilic granulomatosis with polyangiitis
     Route: 065
  38. FLUTICASONE [Suspect]
     Active Substance: FLUTICASONE
     Indication: Eosinophilic granulomatosis with polyangiitis
     Route: 065
  39. FLUTICASONE [Suspect]
     Active Substance: FLUTICASONE
     Route: 065
  40. FLUTICASONE [Suspect]
     Active Substance: FLUTICASONE
     Route: 065
  41. FLUTICASONE PROPIONATE\SALMETEROL XINAFOATE [Suspect]
     Active Substance: FLUTICASONE PROPIONATE\SALMETEROL XINAFOATE
     Indication: Product used for unknown indication
     Route: 065
  42. FOLIC ACID [Suspect]
     Active Substance: FOLIC ACID
     Indication: Product used for unknown indication
     Route: 065
  43. FOLATE SODIUM [Suspect]
     Active Substance: FOLATE SODIUM
     Indication: Product used for unknown indication
     Route: 065
  44. FOLATE SODIUM [Suspect]
     Active Substance: FOLATE SODIUM
     Indication: Product used for unknown indication
     Route: 065
  45. FOSAMAX [Suspect]
     Active Substance: ALENDRONATE SODIUM
     Indication: Product used for unknown indication
     Route: 048
  46. FOSAMAX [Suspect]
     Active Substance: ALENDRONATE SODIUM
     Indication: Product used for unknown indication
     Route: 048
  47. FOSAMAX [Suspect]
     Active Substance: ALENDRONATE SODIUM
     Route: 048
  48. FOSAMAX [Suspect]
     Active Substance: ALENDRONATE SODIUM
     Route: 048
  49. FOSAMAX [Suspect]
     Active Substance: ALENDRONATE SODIUM
     Route: 048
  50. GOSERELIN [Suspect]
     Active Substance: GOSERELIN
     Indication: Product used for unknown indication
     Route: 065
  51. GOSERELIN [Suspect]
     Active Substance: GOSERELIN
     Route: 065
  52. GOSERELIN [Suspect]
     Active Substance: GOSERELIN
     Route: 058
  53. GOSERELIN [Suspect]
     Active Substance: GOSERELIN
     Indication: Product used for unknown indication
     Route: 058
  54. IOBITRIDOL [Suspect]
     Active Substance: IOBITRIDOL
     Indication: Product used for unknown indication
     Route: 065
  55. IOBITRIDOL [Suspect]
     Active Substance: IOBITRIDOL
     Route: 065
  56. IOBITRIDOL [Suspect]
     Active Substance: IOBITRIDOL
     Route: 065
  57. IOBITRIDOL [Suspect]
     Active Substance: IOBITRIDOL
     Route: 065
  58. LANSOPRAZOLE [Suspect]
     Active Substance: LANSOPRAZOLE
     Indication: Product used for unknown indication
  59. METHOTREXATE [Suspect]
     Active Substance: METHOTREXATE
     Indication: Product used for unknown indication
     Route: 065
  60. METHOTREXATE [Suspect]
     Active Substance: METHOTREXATE
     Route: 065
  61. METHOTREXATE [Suspect]
     Active Substance: METHOTREXATE
     Route: 065
  62. METHOTREXATE [Suspect]
     Active Substance: METHOTREXATE
     Route: 065
  63. METHOTREXATE [Suspect]
     Active Substance: METHOTREXATE
     Route: 065
  64. METHOTREXATE [Suspect]
     Active Substance: METHOTREXATE
     Route: 065
  65. METHOTREXATE [Suspect]
     Active Substance: METHOTREXATE
     Route: 065
  66. METHOTREXATE [Suspect]
     Active Substance: METHOTREXATE
     Route: 065
  67. METHOTREXATE [Suspect]
     Active Substance: METHOTREXATE
     Route: 065
  68. METHOTREXATE [Suspect]
     Active Substance: METHOTREXATE
     Route: 065
  69. METHOTREXATE [Suspect]
     Active Substance: METHOTREXATE
     Route: 065
  70. METHOTREXATE [Suspect]
     Active Substance: METHOTREXATE
     Indication: Product used for unknown indication
     Route: 065
  71. METHOTREXATE [Suspect]
     Active Substance: METHOTREXATE
     Route: 065
  72. METHOTREXATE [Suspect]
     Active Substance: METHOTREXATE
     Route: 065
  73. METHOTREXATE [Suspect]
     Active Substance: METHOTREXATE
     Route: 065
  74. METHOTREXATE [Suspect]
     Active Substance: METHOTREXATE
     Route: 065
  75. METHOTREXATE [Suspect]
     Active Substance: METHOTREXATE
     Route: 065
  76. METHOTREXATE [Suspect]
     Active Substance: METHOTREXATE
     Route: 065
  77. METHOTREXATE [Suspect]
     Active Substance: METHOTREXATE
     Route: 065
  78. METHOTREXATE [Suspect]
     Active Substance: METHOTREXATE
     Route: 065
  79. METHOTREXATE [Suspect]
     Active Substance: METHOTREXATE
     Route: 065
  80. OMNARIS [Suspect]
     Active Substance: CICLESONIDE
     Indication: Product used for unknown indication
     Route: 065
  81. OMNARIS [Suspect]
     Active Substance: CICLESONIDE
     Route: 065
  82. OMNARIS [Suspect]
     Active Substance: CICLESONIDE
     Route: 065
  83. OMNARIS [Suspect]
     Active Substance: CICLESONIDE
     Route: 065
  84. OMNARIS [Suspect]
     Active Substance: CICLESONIDE
     Route: 048
  85. OMNARIS [Suspect]
     Active Substance: CICLESONIDE
     Indication: Product used for unknown indication
     Route: 065
  86. OMNARIS [Suspect]
     Active Substance: CICLESONIDE
     Route: 065
  87. OMNARIS [Suspect]
     Active Substance: CICLESONIDE
     Route: 065
  88. PREDNISONE [Suspect]
     Active Substance: PREDNISONE
     Indication: Product used for unknown indication
     Route: 065
  89. PREDNISONE [Suspect]
     Active Substance: PREDNISONE
     Route: 065
  90. PREDNISONE [Suspect]
     Active Substance: PREDNISONE
     Route: 065
  91. PREDNISONE [Suspect]
     Active Substance: PREDNISONE
     Route: 065
  92. PREDNISONE [Suspect]
     Active Substance: PREDNISONE
     Route: 065
  93. PREDNISONE [Suspect]
     Active Substance: PREDNISONE
     Route: 065
  94. PREDNISONE [Suspect]
     Active Substance: PREDNISONE
     Route: 065
  95. PREDNISONE [Suspect]
     Active Substance: PREDNISONE
     Route: 065
  96. PREDNISONE [Suspect]
     Active Substance: PREDNISONE
     Route: 065
  97. PREDNISONE [Suspect]
     Active Substance: PREDNISONE
     Route: 065
  98. PREDNISONE [Suspect]
     Active Substance: PREDNISONE
     Indication: Product used for unknown indication
     Route: 065
  99. PREDNISONE [Suspect]
     Active Substance: PREDNISONE
     Route: 065
  100. PREDNISONE [Suspect]
     Active Substance: PREDNISONE
     Route: 065
  101. PREDNISONE [Suspect]
     Active Substance: PREDNISONE
     Route: 065
  102. PREDNISONE [Suspect]
     Active Substance: PREDNISONE
     Route: 065
  103. PREDNISONE [Suspect]
     Active Substance: PREDNISONE
     Route: 065
  104. PREDNISONE [Suspect]
     Active Substance: PREDNISONE
     Route: 065
  105. PREDNISONE [Suspect]
     Active Substance: PREDNISONE
     Route: 065
  106. PREDNISONE [Suspect]
     Active Substance: PREDNISONE
     Route: 065
  107. RAMIPRIL [Suspect]
     Active Substance: RAMIPRIL
     Indication: Product used for unknown indication
     Route: 065
  108. RAMIPRIL [Suspect]
     Active Substance: RAMIPRIL
     Route: 048
  109. RAMIPRIL [Suspect]
     Active Substance: RAMIPRIL
     Indication: Product used for unknown indication
     Route: 065
  110. RAMIPRIL [Suspect]
     Active Substance: RAMIPRIL
     Route: 065
  111. RAMIPRIL [Suspect]
     Active Substance: RAMIPRIL
     Route: 048
  112. ALBUTEROL [Suspect]
     Active Substance: ALBUTEROL
     Indication: Product used for unknown indication
     Route: 065
  113. ALBUTEROL [Suspect]
     Active Substance: ALBUTEROL
     Route: 065
  114. ALBUTEROL [Suspect]
     Active Substance: ALBUTEROL
     Route: 065
  115. ALBUTEROL [Suspect]
     Active Substance: ALBUTEROL
     Route: 065
  116. ALBUTEROL [Suspect]
     Active Substance: ALBUTEROL
     Route: 065
  117. ALBUTEROL [Suspect]
     Active Substance: ALBUTEROL
     Route: 065
  118. ALBUTEROL [Suspect]
     Active Substance: ALBUTEROL
     Route: 065
  119. ALBUTEROL [Suspect]
     Active Substance: ALBUTEROL
     Route: 065
  120. SODIUM BICARBONATE\SODIUM CHLORIDE [Suspect]
     Active Substance: SODIUM BICARBONATE\SODIUM CHLORIDE
     Indication: Product used for unknown indication
     Route: 048
  121. SODIUM BICARBONATE\SODIUM CHLORIDE [Suspect]
     Active Substance: SODIUM BICARBONATE\SODIUM CHLORIDE
     Route: 048
  122. SODIUM BICARBONATE\SODIUM CHLORIDE [Suspect]
     Active Substance: SODIUM BICARBONATE\SODIUM CHLORIDE
     Indication: Product used for unknown indication
     Route: 048
  123. SODIUM BICARBONATE [Suspect]
     Active Substance: SODIUM BICARBONATE
     Indication: Product used for unknown indication
     Route: 065
  124. SODIUM BICARBONATE\SODIUM CHLORIDE [Suspect]
     Active Substance: SODIUM BICARBONATE\SODIUM CHLORIDE
     Indication: Product used for unknown indication
     Route: 065
  125. EDETATE CALCIUM DISODIUM [Suspect]
     Active Substance: EDETATE CALCIUM DISODIUM
     Indication: Product used for unknown indication
     Route: 065
  126. EDETATE CALCIUM DISODIUM [Suspect]
     Active Substance: EDETATE CALCIUM DISODIUM
     Route: 065
  127. EDETATE CALCIUM DISODIUM [Suspect]
     Active Substance: EDETATE CALCIUM DISODIUM
     Route: 065
  128. EDETATE CALCIUM DISODIUM [Suspect]
     Active Substance: EDETATE CALCIUM DISODIUM
     Route: 065
  129. SULFAMETHOXAZOLE\TRIMETHOPRIM [Suspect]
     Active Substance: SULFAMETHOXAZOLE\TRIMETHOPRIM
     Indication: Product used for unknown indication
     Route: 065
  130. VENTOLIN [Suspect]
     Active Substance: ALBUTEROL SULFATE
     Indication: Eosinophilic granulomatosis with polyangiitis
  131. GOSERELIN [Suspect]
     Active Substance: GOSERELIN
     Indication: Product used for unknown indication
     Route: 058
  132. GOSERELIN [Suspect]
     Active Substance: GOSERELIN
     Route: 058
  133. GOSERELIN [Suspect]
     Active Substance: GOSERELIN
     Route: 058
  134. VITAMIN D NOS [Suspect]
     Active Substance: CHOLECALCIFEROL\ERGOCALCIFEROL
     Indication: Product used for unknown indication
     Route: 065
  135. VITAMIN D4 [Suspect]
     Active Substance: VITAMIN D4
     Indication: Product used for unknown indication
     Route: 065

REACTIONS (34)
  - Airway remodelling [Unknown]
  - Asthma [Unknown]
  - Atopy [Unknown]
  - Blood immunoglobulin E increased [Unknown]
  - Cardiac septal defect [Unknown]
  - Central nervous system mass [Unknown]
  - Condition aggravated [Unknown]
  - Eosinophil count decreased [Unknown]
  - Eosinophil count increased [Unknown]
  - Eosinophilic granulomatosis with polyangiitis [Unknown]
  - Eosinophilic myocarditis [Unknown]
  - Eosinophilic pneumonia [Unknown]
  - Haematuria [Unknown]
  - Memory impairment [Unknown]
  - Microangiopathy [Unknown]
  - Nasal polyps [Unknown]
  - Nodule [Unknown]
  - Obesity [Unknown]
  - Obstructive airways disorder [Unknown]
  - Productive cough [Unknown]
  - Prostate cancer [Unknown]
  - Respiratory symptom [Unknown]
  - Ventricular hypokinesia [Unknown]
  - Wall motion score index abnormal [Unknown]
  - Chronic sinusitis [Unknown]
  - Confusional state [Unknown]
  - Haemorrhage [Unknown]
  - Hypertension [Unknown]
  - Lacrimation increased [Unknown]
  - Lymphopenia [Unknown]
  - Pneumonia [Unknown]
  - Renal disorder [Unknown]
  - Respiratory tract infection [Unknown]
  - Viral infection [Unknown]
